FAERS Safety Report 4405766-2 (Version None)
Quarter: 2004Q3

REPORT INFORMATION
  Report Type: 
  Country: None (occurrence: None)
  Receive Date: 20040723
  Receipt Date: 20031205
  Transmission Date: 20050211
  Serious: No
  Sender: FDA-Public Use
  Company Number: US-GLAXOSMITHKLINE-A0442183A

PATIENT
  Age: 61 Year
  Sex: Male

DRUGS (5)
  1. AVANDIA [Suspect]
     Dosage: 4MG TWICE PER DAY
     Route: 048
     Dates: start: 20030801, end: 20031101
  2. GLUCOTROL [Concomitant]
  3. GLUCOPHAGE [Concomitant]
     Route: 065
  4. INSULIN [Concomitant]
  5. THYROID MEDICATION [Concomitant]
     Route: 065

REACTIONS (1)
  - WEIGHT INCREASED [None]
